FAERS Safety Report 8237830-4 (Version None)
Quarter: 2012Q1

REPORT INFORMATION
  Report Type: 
  Country: None (occurrence: None)
  Receive Date: 20120327
  Receipt Date: 20120323
  Transmission Date: 20120608
  Serious: Yes (Hospitalization)
  Sender: FDA-Public Use
  Company Number: US-GILEAD-2012-0051440

PATIENT
  Sex: Female

DRUGS (4)
  1. REVATIO [Concomitant]
  2. LETAIRIS [Suspect]
     Indication: PULMONARY HYPERTENSION
     Dosage: 10 MG, UNK
     Route: 048
     Dates: start: 20110320
  3. LETAIRIS [Suspect]
     Indication: CONNECTIVE TISSUE DISORDER
     Dosage: UNK
     Route: 048
  4. REMODULIN [Suspect]

REACTIONS (4)
  - PULMONARY ARTERIAL HYPERTENSION [None]
  - DYSPNOEA [None]
  - PULMONARY FUNCTION TEST DECREASED [None]
  - PULMONARY OEDEMA [None]
